FAERS Safety Report 4361053-2 (Version None)
Quarter: 2004Q2

REPORT INFORMATION
  Report Type: 
  Country: None (occurrence: None)
  Receive Date: 20040519
  Receipt Date: 20040519
  Transmission Date: 20050107
  Serious: Yes (Hospitalization)
  Sender: FDA-Public Use
  Company Number: None

PATIENT
  Age: 78 Year
  Sex: Male
  Weight: 102.7 kg

DRUGS (4)
  1. METOPROLOL [Suspect]
  2. FELODIPINE [Concomitant]
  3. FUROSEMIDE [Concomitant]
  4. FOSINOPRIL SODIUM [Concomitant]

REACTIONS (3)
  - BRADYCARDIA [None]
  - DIZZINESS POSTURAL [None]
  - FATIGUE [None]
